FAERS Safety Report 8187772-8 (Version None)
Quarter: 2012Q1

REPORT INFORMATION
  Report Type: 
  Country: None (occurrence: None)
  Receive Date: 20120306
  Receipt Date: 20120224
  Transmission Date: 20120608
  Serious: Yes (Hospitalization, Disabling, Other)
  Sender: FDA-Public Use
  Company Number: US-MERCK-1103USA00909

PATIENT
  Age: 79 Year
  Sex: Female

DRUGS (5)
  1. ALENDRONATE SODIUM [Suspect]
     Indication: OSTEOPENIA
     Route: 048
     Dates: start: 20100201, end: 20100901
  2. [THERAPY UNSPECIFIED] [Concomitant]
     Indication: HYPERTENSION
     Route: 065
     Dates: start: 20010901, end: 20100101
  3. FOSAMAX [Suspect]
     Indication: OSTEOPENIA
     Route: 048
     Dates: start: 20021001, end: 20100301
  4. VITAMINS (UNSPECIFIED) [Concomitant]
     Route: 065
     Dates: start: 20030101, end: 20100101
  5. ASCORBIC ACID [Concomitant]
     Route: 065
     Dates: start: 20030101, end: 20100101

REACTIONS (29)
  - ARTHROPATHY [None]
  - FALL [None]
  - JOINT INJURY [None]
  - ASTHENIA [None]
  - CARDIAC FAILURE CONGESTIVE [None]
  - CARDIOVASCULAR DISORDER [None]
  - MUSCULOSKELETAL PAIN [None]
  - MYOSITIS [None]
  - BACK DISORDER [None]
  - OSTEOPOROSIS [None]
  - STRESS FRACTURE [None]
  - MYALGIA [None]
  - SPINAL OSTEOARTHRITIS [None]
  - CHRONIC LYMPHOCYTIC LEUKAEMIA [None]
  - HYPONATRAEMIA [None]
  - RESTLESS LEGS SYNDROME [None]
  - HYPOTHYROIDISM [None]
  - HYPERKALAEMIA [None]
  - HEAD INJURY [None]
  - LOW TURNOVER OSTEOPATHY [None]
  - BACK INJURY [None]
  - CYST [None]
  - SPINAL COMPRESSION FRACTURE [None]
  - INSOMNIA [None]
  - FEMUR FRACTURE [None]
  - CONSTIPATION [None]
  - INTERVERTEBRAL DISC DEGENERATION [None]
  - RENAL CYST [None]
  - PAIN IN EXTREMITY [None]
